FAERS Safety Report 21285065 (Version 2)
Quarter: 2022Q3

REPORT INFORMATION
  Report Type: Spontaneous
  Country: US (occurrence: US)
  Receive Date: 20220902
  Receipt Date: 20220928
  Transmission Date: 20221027
  Serious: No
  Sender: FDA-Public Use
  Company Number: US-BRISTOL-MYERS SQUIBB COMPANY-2022-098068

PATIENT
  Age: 71 Year
  Sex: Male

DRUGS (2)
  1. POMALYST [Suspect]
     Active Substance: POMALIDOMIDE
     Indication: Hepatitis viral
     Dosage: FREQUENCY : TAKE 1 CAPSULE BY MOUTH DAILY FOR 21 DAYS THEN 7 DAYS OFF (28 DAY CYCLE.
     Route: 048
     Dates: start: 20220803
  2. POMALYST [Suspect]
     Active Substance: POMALIDOMIDE
     Dosage: FREQUENCY : TAKE 1 CAPSULE BY MOUTH EVERYDAY ON DAYS 1-21 OF A 28 DAY CYCLE.
     Route: 048

REACTIONS (3)
  - Fatigue [Unknown]
  - Full blood count decreased [Unknown]
  - Intentional product use issue [Unknown]
